FAERS Safety Report 15371223 (Version 2)
Quarter: 2018Q3

REPORT INFORMATION
  Report Type: Spontaneous
  Country: US (occurrence: US)
  Receive Date: 20180911
  Receipt Date: 20180912
  Transmission Date: 20181010
  Serious: No
  Sender: FDA-Public Use
  Company Number: US-009507513-1808USA010990

PATIENT
  Sex: Female

DRUGS (5)
  1. MINIVELLE [Concomitant]
     Active Substance: ESTRADIOL
  2. LEUPROLIDE [Concomitant]
     Active Substance: LEUPROLIDE
  3. ESTRADIOL. [Concomitant]
     Active Substance: ESTRADIOL
  4. PROGESTERONE. [Concomitant]
     Active Substance: PROGESTERONE
  5. FOLLISTIM [Suspect]
     Active Substance: FOLLITROPIN
     Indication: INFERTILITY FEMALE
     Dosage: 300?400MG QD FOR 10?14 DAYS
     Route: 058
     Dates: start: 20170927

REACTIONS (1)
  - Rash generalised [Unknown]
